FAERS Safety Report 19465355 (Version 1)
Quarter: 2021Q2

REPORT INFORMATION
  Report Type: Report from Study
  Country: CR (occurrence: CR)
  Receive Date: 20210624
  Receipt Date: 20210624
  Transmission Date: 20210717
  Serious: Yes (Other)
  Sender: FDA-Public Use
  Company Number: NVSC2021CR132901

PATIENT
  Age: 62 Year
  Sex: Male

DRUGS (2)
  1. VYMADA [Suspect]
     Active Substance: SACUBITRIL\VALSARTAN
     Indication: PRODUCT USED FOR UNKNOWN INDICATION
     Dosage: 50 MG (STOPPED YESTERDAY)
     Route: 065
     Dates: start: 202104
  2. VYMADA [Suspect]
     Active Substance: SACUBITRIL\VALSARTAN
     Dosage: 100 MG (STARTED TODAY)
     Route: 065

REACTIONS (6)
  - Cardiac failure [Unknown]
  - Pulmonary oedema [Unknown]
  - Drug ineffective [Unknown]
  - Pericardial effusion [Unknown]
  - Fluid retention [Unknown]
  - Hypertension [Unknown]
